FAERS Safety Report 4856299-0 (Version None)
Quarter: 2005Q4

REPORT INFORMATION
  Report Type: 
  Country: None (occurrence: None)
  Receive Date: 20051215
  Receipt Date: 20051202
  Transmission Date: 20060501
  Serious: Yes (Hospitalization, Other)
  Sender: FDA-Public Use
  Company Number: USA-2005-0021908

PATIENT
  Age: 62 Year
  Sex: Female

DRUGS (4)
  1. CEFDITOREN PIVOXIL (CEFDITOREN PIVOXIL) OTHER [Suspect]
     Indication: NASOPHARYNGITIS
     Dosage: 100 MG, DAILY, ORAL
     Route: 048
     Dates: start: 20051122, end: 20051122
  2. POLARAMINE [Concomitant]
  3. LEBENIN (STREPTOCOCCUS FAECALIS, LACTOBACILLUS BIFIDUS, LYOPHILIZED, L [Concomitant]
  4. MARZULENE (SODIUM GUALENATE) [Concomitant]

REACTIONS (2)
  - SHOCK [None]
  - VOMITING [None]
